FAERS Safety Report 5868956-8 (Version None)
Quarter: 2008Q3

REPORT INFORMATION
  Report Type: 
  Country: None (occurrence: None)
  Receive Date: 20080828
  Receipt Date: 20080825
  Transmission Date: 20090109
  Serious: Yes (Hospitalization)
  Sender: FDA-Public Use
  Company Number: TPA2008A01164

PATIENT
  Age: 78 Year
  Sex: Male
  Weight: 80.7403 kg

DRUGS (5)
  1. ACTOS [Suspect]
     Indication: TYPE 2 DIABETES MELLITUS
     Dosage: 45 MG, 1 IN 1 D, PRE ORAL
     Route: 048
  2. GLYBURIDE [Concomitant]
  3. METFORMIN HCL [Concomitant]
  4. ZOCOR [Concomitant]
  5. UNKNONW MEDICATION (ALL OTHER TERAPRUTIC PRODUCTS) [Concomitant]

REACTIONS (4)
  - CARDIAC VALVE DISEASE [None]
  - CATARACT [None]
  - HYPOGLYCAEMIA [None]
  - VISUAL ACUITY REDUCED [None]
